FAERS Safety Report 4702934-7 (Version None)
Quarter: 2005Q2

REPORT INFORMATION
  Report Type: 
  Country: None (occurrence: None)
  Receive Date: 20050629
  Receipt Date: 20050622
  Transmission Date: 20051028
  Serious: Yes (Hospitalization)
  Sender: FDA-Public Use
  Company Number: US-JNJFOC-20050606430

PATIENT
  Sex: Male
  Weight: 89.36 kg

DRUGS (2)
  1. DURAGESIC-100 [Suspect]
     Route: 062
     Dates: start: 20040101
  2. DURAGESIC-100 [Suspect]
     Route: 062
     Dates: start: 20040101

REACTIONS (2)
  - MEDICAL DEVICE COMPLICATION [None]
  - WEIGHT DECREASED [None]
